FAERS Safety Report 7264146-5 (Version None)
Quarter: 2011Q1

REPORT INFORMATION
  Report Type: 
  Country: None (occurrence: None)
  Receive Date: 20110131
  Receipt Date: 20110119
  Transmission Date: 20110831
  Serious: Yes (Hospitalization)
  Sender: FDA-Public Use
  Company Number: US-BIOGENIDEC-2010BI042434

PATIENT
  Age: 39 Year
  Sex: Female
  Weight: 67 kg

DRUGS (10)
  1. TYSABRI [Suspect]
     Indication: MULTIPLE SCLEROSIS
     Route: 042
     Dates: start: 20080501
  2. AMITRIPTYLINE HCL [Concomitant]
     Route: 048
  3. ALPRAZOLAM [Concomitant]
     Route: 048
  4. LEVAQUIN [Concomitant]
     Route: 048
  5. CEFDINIR [Concomitant]
     Route: 048
  6. BUSPIRONE HCL [Concomitant]
     Route: 048
  7. PROMETHAZINE HCL [Concomitant]
  8. LEXAPRO [Concomitant]
     Route: 048
  9. LYSINE [Concomitant]
     Route: 048
  10. LORCET-HD [Concomitant]

REACTIONS (10)
  - DYSPNOEA EXERTIONAL [None]
  - SINUSITIS [None]
  - ADVERSE DRUG REACTION [None]
  - CONTUSION [None]
  - PNEUMONIA [None]
  - LUNG DISORDER [None]
  - NASAL DISCOMFORT [None]
  - PALPITATIONS [None]
  - PERTUSSIS [None]
  - BRONCHITIS [None]
